FAERS Safety Report 17967647 (Version 3)
Quarter: 2020Q4

REPORT INFORMATION
  Report Type: Spontaneous
  Country: US (occurrence: US)
  Receive Date: 20200701
  Receipt Date: 20201020
  Transmission Date: 20210113
  Serious: No
  Sender: FDA-Public Use
  Company Number: US-PFIZER INC-2020251876

PATIENT
  Age: 39 Year
  Sex: Female

DRUGS (1)
  1. XELJANZ [Suspect]
     Active Substance: TOFACITINIB CITRATE
     Indication: COLITIS ULCERATIVE
     Dosage: 10 MG, 2X/DAY
     Route: 048
     Dates: start: 20200602

REACTIONS (16)
  - Condition aggravated [Unknown]
  - Depressed mood [Unknown]
  - Lymphadenopathy [Unknown]
  - Finger deformity [Unknown]
  - Joint swelling [Unknown]
  - Arthropathy [Unknown]
  - Polyp [Unknown]
  - Product dose omission issue [Unknown]
  - Pain [Unknown]
  - Pain in extremity [Unknown]
  - Sluggishness [Unknown]
  - Musculoskeletal stiffness [Unknown]
  - Peripheral swelling [Unknown]
  - Muscular weakness [Unknown]
  - Arthritis [Unknown]
  - Arthralgia [Unknown]

NARRATIVE: CASE EVENT DATE: 20200602
